FAERS Safety Report 5144518-5 (Version None)
Quarter: 2006Q4

REPORT INFORMATION
  Report Type: 
  Country: None (occurrence: None)
  Receive Date: 20061031
  Receipt Date: 20061018
  Transmission Date: 20070319
  Serious: Yes (Disabling)
  Sender: FDA-Public Use
  Company Number: 2006127886

PATIENT
  Age: 78 Year
  Sex: Male

DRUGS (8)
  1. VFEND [Suspect]
     Dosage: 1200 MG (600 MG, 2 IN 1 D), ORAL ; 600 MG (300 MG, 2 IN 1 D), ORAL
     Route: 048
     Dates: end: 20060719
  2. VFEND [Suspect]
     Dosage: 1200 MG (600 MG, 2 IN 1 D), ORAL ; 600 MG (300 MG, 2 IN 1 D), ORAL
     Route: 048
     Dates: start: 20060704
  3. ASPIRIN [Concomitant]
  4. TAMSULOSIN HCL [Concomitant]
  5. BESACOLIN (BETHANECHOL CHLORIDE) [Concomitant]
  6. METHYCOBAL (MECOBALAMIN) [Concomitant]
  7. PLETAL [Concomitant]
  8. AMOBAN (ZOPICLONE) [Concomitant]

REACTIONS (3)
  - ABASIA [None]
  - HYPOAESTHESIA [None]
  - PAIN IN EXTREMITY [None]
